FAERS Safety Report 21423876 (Version 2)
Quarter: 2022Q4

REPORT INFORMATION
  Report Type: Spontaneous
  Country: SE (occurrence: SE)
  Receive Date: 20221007
  Receipt Date: 20221209
  Transmission Date: 20230113
  Serious: Yes (Life-Threatening, Hospitalization, Disabling)
  Sender: FDA-Public Use
  Company Number: None

PATIENT
  Age: 17 Year
  Sex: Female
  Weight: 70 kg

DRUGS (1)
  1. LAMOTRIGINE [Suspect]
     Active Substance: LAMOTRIGINE
     Indication: Bipolar disorder
     Dosage: 25 MILLIGRAM DAILY; 1X1, LAMOTRIGIN ACTAVIS 25 MG , DURATION : 27 DAYS
     Dates: start: 20220706, end: 20220802

REACTIONS (17)
  - Fatigue [Recovering/Resolving]
  - Optic neuritis [Recovering/Resolving]
  - Haematoma [Recovered/Resolved]
  - Tremor [Recovering/Resolving]
  - Renal function test abnormal [Unknown]
  - Abdominal pain [Unknown]
  - Leukocytosis [Recovered/Resolved]
  - Dizziness [Recovering/Resolving]
  - Vomiting [Recovered/Resolved]
  - Intracranial pressure increased [Recovering/Resolving]
  - Hyperacusis [Recovering/Resolving]
  - Diplopia [Recovering/Resolving]
  - Headache [Recovering/Resolving]
  - Hepatic enzyme increased [Recovered/Resolved]
  - Photophobia [Recovering/Resolving]
  - Mood swings [Recovered/Resolved]
  - Seizure [Not Recovered/Not Resolved]

NARRATIVE: CASE EVENT DATE: 20220710
